FAERS Safety Report 5756354-7 (Version None)
Quarter: 2008Q2

REPORT INFORMATION
  Report Type: 
  Country: None (occurrence: None)
  Receive Date: 20080528
  Receipt Date: 20080528
  Transmission Date: 20081010
  Serious: Yes (Other)
  Sender: FDA-Public Use
  Company Number: None

PATIENT
  Sex: Male
  Weight: 54.87 kg

DRUGS (2)
  1. DEPAKOTE [Suspect]
     Indication: EPILEPSY
     Dosage: 2000MG DAILY PO
     Route: 048
     Dates: start: 20070401, end: 20080527
  2. INVANZ [Suspect]
     Indication: PNEUMONIA
     Dosage: 1000MG DAILY IV
     Route: 042
     Dates: start: 20080429, end: 20080506

REACTIONS (3)
  - CONVULSION [None]
  - DRUG INTERACTION [None]
  - DRUG LEVEL DECREASED [None]
